FAERS Safety Report 17962958 (Version 1)
Quarter: 2020Q2

REPORT INFORMATION
  Report Type: Report from Study
  Country: US (occurrence: US)
  Receive Date: 20200630
  Receipt Date: 20200630
  Transmission Date: 20200714
  Serious: Yes (Death, Other)
  Sender: FDA-Public Use
  Company Number: US-GILEAD-2020-0475495

PATIENT
  Age: 53 Year
  Sex: Male

DRUGS (1)
  1. IDELALISIB [Suspect]
     Active Substance: IDELALISIB
     Indication: DIFFUSE LARGE B-CELL LYMPHOMA
     Dosage: 150 MG, QD
     Route: 048
     Dates: start: 20200327, end: 20200604

REACTIONS (2)
  - Off label use [Not Recovered/Not Resolved]
  - Death [Fatal]

NARRATIVE: CASE EVENT DATE: 20200604
